FAERS Safety Report 5015742-7 (Version None)
Quarter: 2006Q2

REPORT INFORMATION
  Report Type: 
  Country: None (occurrence: None)
  Receive Date: 20060419
  Receipt Date: 20060210
  Transmission Date: 20061013
  Serious: No
  Sender: FDA-Public Use
  Company Number: 2006-00542

PATIENT
  Age: 46 Year
  Sex: Female
  Weight: 57.1 kg

DRUGS (2)
  1. FERRLECIT [Suspect]
     Indication: MINERAL SUPPLEMENTATION
     Dosage: 250 MG, SINGLE OVER 2 HOURS, INTRAVENOUS
     Route: 042
     Dates: start: 20060208, end: 20060208
  2. EPOGEN [Concomitant]

REACTIONS (7)
  - ABDOMINAL PAIN UPPER [None]
  - ASTHENIA [None]
  - BURNING SENSATION [None]
  - DYSPNOEA [None]
  - HYPOTENSION [None]
  - LIVEDO RETICULARIS [None]
  - PAIN IN EXTREMITY [None]
